FAERS Safety Report 5891498-0 (Version None)
Quarter: 2008Q3

REPORT INFORMATION
  Report Type: 
  Country: None (occurrence: None)
  Receive Date: 20080922
  Receipt Date: 20080915
  Transmission Date: 20090109
  Serious: No
  Sender: FDA-Public Use
  Company Number: US-BAYER-200828718NA

PATIENT
  Age: 48 Year
  Sex: Male

DRUGS (1)
  1. ULTRAVIST 150 [Suspect]
     Indication: COMPUTERISED TOMOGRAM ABDOMEN
     Dosage: TOTAL DAILY DOSE: 110 ML  UNIT DOSE: 500 ML
     Route: 042
     Dates: start: 20080702, end: 20080702

REACTIONS (1)
  - RASH [None]
